FAERS Safety Report 4491269-6 (Version None)
Quarter: 2004Q4

REPORT INFORMATION
  Report Type: 
  Country: None (occurrence: None)
  Receive Date: 20041101
  Receipt Date: 20041101
  Transmission Date: 20050328
  Serious: Yes (Life-Threatening)
  Sender: FDA-Public Use
  Company Number: None

PATIENT
  Age: 22 Year
  Sex: Male
  Weight: 71 kg

DRUGS (4)
  1. BACLOFEN [Suspect]
     Indication: CEREBRAL PALSY
     Dosage: 40 MG PO Q 6 H [2 DOSES]
     Route: 048
     Dates: start: 20040310, end: 20040311
  2. BACLOFEN [Suspect]
     Indication: QUADRIPLEGIA
     Dosage: 40 MG PO Q 6 H [2 DOSES]
     Route: 048
     Dates: start: 20040310, end: 20040311
  3. BACLOFEN [Suspect]
     Indication: SPASTIC PARALYSIS
     Dosage: 40 MG PO Q 6 H [2 DOSES]
     Route: 048
     Dates: start: 20040310, end: 20040311
  4. CLONAZEPAM [Suspect]
     Dosage: 1.5 MG PO Q6 H [2 DOSES]
     Route: 048
     Dates: start: 20040310, end: 20040311

REACTIONS (5)
  - APNOEA [None]
  - OXYGEN SATURATION DECREASED [None]
  - PROCEDURAL COMPLICATION [None]
  - RESPIRATORY DEPRESSION [None]
  - SCAR [None]
